FAERS Safety Report 21380323 (Version 3)
Quarter: 2022Q4

REPORT INFORMATION
  Report Type: Report from Study
  Country: US (occurrence: US)
  Receive Date: 20220927
  Receipt Date: 20221018
  Transmission Date: 20230112
  Serious: Yes (Life-Threatening)
  Sender: FDA-Public Use
  Company Number: US-ALKERMES INC.-ALK-2022-004659

PATIENT
  Age: 25 Year
  Sex: Female

DRUGS (21)
  1. VIVITROL [Suspect]
     Active Substance: NALTREXONE
     Indication: Drug use disorder
     Dosage: DRUG NOT ADMINSTERED
     Route: 030
  2. BUPRENORPHINE [Suspect]
     Active Substance: BUPRENORPHINE
     Indication: Drug use disorder
     Dosage: 2.0 MILLIGRAM
     Route: 060
     Dates: start: 20220316, end: 20220316
  3. NALTREXONE [Suspect]
     Active Substance: NALTREXONE
     Indication: Drug use disorder
     Dosage: 1.0 MILLIGRAM
     Route: 048
     Dates: start: 20220318, end: 20220318
  4. NALTREXONE [Suspect]
     Active Substance: NALTREXONE
     Dosage: 2.0 MILLIGRAM
     Dates: start: 20220319, end: 20220319
  5. CLONIDINE [Concomitant]
     Active Substance: CLONIDINE
     Indication: Drug use disorder
     Dosage: 0.80 MILLIGRAM
     Dates: start: 20220316, end: 20220316
  6. CLONIDINE [Concomitant]
     Active Substance: CLONIDINE
     Dosage: 0.60 MILLIGRAM
     Dates: start: 20220317, end: 20220317
  7. CLONIDINE [Concomitant]
     Active Substance: CLONIDINE
     Dosage: 0.80 MILLIGRAM
     Dates: start: 20220318, end: 20220318
  8. CLONIDINE [Concomitant]
     Active Substance: CLONIDINE
     Dosage: 0.60 MILLIGRAM
     Dates: start: 20220319, end: 20220319
  9. CLONAZEPAM [Concomitant]
     Active Substance: CLONAZEPAM
     Indication: Drug use disorder
     Dosage: 1.0 MILLIGRAM
     Dates: start: 20220316, end: 20220316
  10. CLONAZEPAM [Concomitant]
     Active Substance: CLONAZEPAM
     Dosage: 3.0 MILLIGRAM
     Dates: start: 20220317, end: 20220317
  11. CLONAZEPAM [Concomitant]
     Active Substance: CLONAZEPAM
     Dosage: 4.0 MILLIGRAM
     Dates: start: 20220318, end: 20220318
  12. CLONAZEPAM [Concomitant]
     Active Substance: CLONAZEPAM
     Dosage: 3.0 MILLIGRAM
     Dates: start: 20220319, end: 20220319
  13. LORAZEPAM [Concomitant]
     Active Substance: LORAZEPAM
     Indication: Product used for unknown indication
     Dosage: UNK
  14. PROMETHAZINE [Concomitant]
     Active Substance: PROMETHAZINE HYDROCHLORIDE
     Indication: Product used for unknown indication
     Dosage: UNK
  15. TRAZODONE [Concomitant]
     Active Substance: TRAZODONE HYDROCHLORIDE
     Indication: Product used for unknown indication
     Dosage: UNK
  16. METHOCARBAMOL [Concomitant]
     Active Substance: METHOCARBAMOL
     Indication: Product used for unknown indication
     Dosage: UNK
  17. LOPERAMIDE HYDROCHLORIDE [Concomitant]
     Active Substance: LOPERAMIDE HYDROCHLORIDE
     Indication: Product used for unknown indication
     Dosage: UNK
  18. IBUPROFEN [Concomitant]
     Active Substance: IBUPROFEN
     Indication: Product used for unknown indication
     Dosage: UNK
  19. GABAPENTIN [Concomitant]
     Active Substance: GABAPENTIN
     Indication: Product used for unknown indication
     Dosage: UNK
  20. PROZAC [Concomitant]
     Active Substance: FLUOXETINE HYDROCHLORIDE
     Indication: Product used for unknown indication
     Dosage: UNK
  21. WELLBUTRIN [Concomitant]
     Active Substance: BUPROPION HYDROCHLORIDE
     Indication: Product used for unknown indication
     Dosage: UNK

REACTIONS (1)
  - Overdose [Recovered/Resolved]

NARRATIVE: CASE EVENT DATE: 20220319
